FAERS Safety Report 21270678 (Version 2)
Quarter: 2022Q4

REPORT INFORMATION
  Report Type: Spontaneous
  Country: PT (occurrence: PT)
  Receive Date: 20220830
  Receipt Date: 20221008
  Transmission Date: 20230113
  Serious: Yes (Other)
  Sender: FDA-Public Use
  Company Number: None

PATIENT
  Age: 83 Year
  Sex: Male

DRUGS (1)
  1. AMOXICILLIN\CLAVULANIC ACID [Suspect]
     Active Substance: AMOXICILLIN\CLAVULANIC ACID
     Indication: Wound infection pseudomonas
     Dosage: 1 CP 12/12H, FOR ACTIVE INGREDIENT AMOXICILLIN THE STRENGTH IS 875 MILLIGRAM, FOR ACTIVE INGREDIENT
     Dates: start: 20220728, end: 20220801

REACTIONS (2)
  - Rash [Recovered/Resolved]
  - Hypotension [Unknown]

NARRATIVE: CASE EVENT DATE: 20220728
